FAERS Safety Report 21032895 (Version 4)
Quarter: 2022Q3

REPORT INFORMATION
  Report Type: Spontaneous
  Country: US (occurrence: US)
  Receive Date: 20220701
  Receipt Date: 20220829
  Transmission Date: 20221026
  Serious: No
  Sender: FDA-Public Use
  Company Number: US-AMGEN-USASP2022110172

PATIENT
  Age: 76 Year
  Sex: Female

DRUGS (3)
  1. OTEZLA [Suspect]
     Active Substance: APREMILAST
     Indication: Rheumatoid arthritis
     Dosage: 30 MILLIGRAM, BID
     Route: 048
     Dates: start: 20220531, end: 2022
  2. OTEZLA [Suspect]
     Active Substance: APREMILAST
     Indication: Off label use
     Dosage: 30 MILLIGRAM, QD
     Route: 065
     Dates: start: 2022
  3. ENBREL [Suspect]
     Active Substance: ETANERCEPT
     Indication: Rheumatoid arthritis
     Dosage: UNK
     Route: 065

REACTIONS (5)
  - Nausea [Unknown]
  - Vomiting [Recovered/Resolved]
  - Diarrhoea [Recovering/Resolving]
  - Wrong technique in product usage process [Unknown]
  - Off label use [Unknown]

NARRATIVE: CASE EVENT DATE: 20220101
